FAERS Safety Report 9315887 (Version 2)
Quarter: 2013Q3

REPORT INFORMATION
  Report Type: Spontaneous
  Country: CA (occurrence: CA)
  Receive Date: 20130530
  Receipt Date: 20130827
  Transmission Date: 20140515
  Serious: Yes (Hospitalization, Other)
  Sender: FDA-Public Use
  Company Number: CA-AMGEN-CANSP2013037900

PATIENT
  Age: 67 Year
  Sex: Male

DRUGS (1)
  1. ENBREL [Suspect]
     Indication: PSORIATIC ARTHROPATHY
     Dosage: 50 MG, UNK
     Route: 065
     Dates: start: 20130313, end: 20130601

REACTIONS (5)
  - Pyrexia [Not Recovered/Not Resolved]
  - Pulmonary oedema [Recovering/Resolving]
  - Abscess [Recovering/Resolving]
  - Diabetes mellitus [Recovering/Resolving]
  - Gait disturbance [Recovering/Resolving]
